FAERS Safety Report 4894861-X (Version None)
Quarter: 2006Q1

REPORT INFORMATION
  Report Type: 
  Country: None (occurrence: None)
  Receive Date: 20060127
  Receipt Date: 20060127
  Transmission Date: 20060701
  Serious: Yes (Hospitalization, Other)
  Sender: FDA-Public Use
  Company Number: None

PATIENT
  Sex: Female
  Weight: 82.4 kg

DRUGS (2)
  1. CISPLATIN [Suspect]
     Indication: ADENOCARCINOMA OF THE CERVIX
     Dosage: SEE IMAGE
     Dates: start: 20051227, end: 20051227
  2. GEMCITABINE HYDROCHLORIDE [Suspect]
     Dosage: SEE IMAGE
     Dates: start: 20051227, end: 20060104

REACTIONS (3)
  - APHASIA [None]
  - BLOOD ELECTROLYTES ABNORMAL [None]
  - UROSEPSIS [None]
